FAERS Safety Report 7079315-7 (Version None)
Quarter: 2010Q4

REPORT INFORMATION
  Report Type: 
  Country: None (occurrence: None)
  Receive Date: 20101102
  Receipt Date: 20091002
  Transmission Date: 20110411
  Serious: No
  Sender: FDA-Public Use
  Company Number: A0810138A

PATIENT
  Age: 85 Year
  Sex: Female

DRUGS (1)
  1. RYTHMOL SR [Suspect]
     Indication: ATRIAL FIBRILLATION
     Dosage: 225MG UNKNOWN
     Route: 048

REACTIONS (3)
  - BRADYCARDIA [None]
  - DRUG INEFFECTIVE [None]
  - TREMOR [None]
